FAERS Safety Report 8030411 (Version 3)
Quarter: 2012Q4

REPORT INFORMATION
  Report Type: 
  Country: JP (occurrence: JP)
  Receive Date: 20110712
  Receipt Date: 20120914
  Transmission Date: 20130627
  Serious: Yes (Life-Threatening, Other)
  Sender: FDA-Public Use
  Company Number: JP-GENZYME-THYM-1002590

PATIENT
  Age: 1 Year
  Sex: Male
  Weight: 11 kg

DRUGS (37)
  1. THYMOGLOBULIN [Suspect]
     Indication: BONE MARROW CONDITIONING REGIMEN
     Dosage: 28 mg, qd
     Route: 042
     Dates: start: 20110618, end: 20110619
  2. METHYLPREDNISOLONE SODIUM SUCCINATE [Concomitant]
     Indication: ALLERGY PROPHYLAXIS
     Dosage: 35 mg, bid
     Route: 065
     Dates: start: 20110618
  3. METHYLPREDNISOLONE SODIUM SUCCINATE [Concomitant]
     Indication: PROPHYLAXIS
     Dosage: 35 mg, bid
     Dates: start: 20110618, end: 20110724
  4. METHYLPREDNISOLONE SODIUM SUCCINATE [Concomitant]
     Indication: PREMEDICATION
  5. ALPROSTADIL [Concomitant]
     Indication: PROPHYLAXIS
     Dosage: 8 mcg, qd
     Dates: start: 20110510
  6. ALPROSTADIL [Concomitant]
     Dosage: UNK
     Route: 065
     Dates: start: 20110615
  7. DALTEPARIN SODIUM [Concomitant]
     Indication: PROPHYLAXIS
     Dosage: 900 iu, qd
     Route: 065
     Dates: start: 20110510
  8. DALTEPARIN SODIUM [Concomitant]
     Dosage: 900 iu, qd
     Route: 065
     Dates: start: 20110615, end: 20110725
  9. FLUDARA [Concomitant]
     Indication: STEM CELL TRANSPLANT
     Dosage: 14 mg, qd
     Route: 066
     Dates: start: 20110616, end: 20110619
  10. FLUDARA [Concomitant]
     Indication: LEUKAEMIA
  11. MEROPENEM TRIHYDRATE [Concomitant]
     Indication: PRODUCT USED FOR UNKNOWN INDICATION
     Dosage: 450 mg, tid
     Route: 065
     Dates: start: 20110603, end: 20110704
  12. AMIKACIN SULFATE [Concomitant]
     Indication: PRODUCT USED FOR UNKNOWN INDICATION
     Dosage: 50 mg, qd
     Route: 065
     Dates: start: 20110615, end: 20110618
  13. AMIKACIN SULFATE [Concomitant]
     Indication: ANTIVIRAL PROPHYLAXIS
  14. ARBEKACIN SULFATE [Concomitant]
     Indication: PRODUCT USED FOR UNKNOWN INDICATION
     Dosage: 50 mg, qd
     Route: 065
     Dates: start: 20110618, end: 20110627
  15. ARBEKACIN SULFATE [Concomitant]
     Indication: BACTERIAL INFECTION
  16. ACICLOVIR [Concomitant]
     Indication: PRODUCT USED FOR UNKNOWN INDICATION
     Dosage: 50 mg, bid
     Route: 065
     Dates: start: 20110510
  17. ACICLOVIR [Concomitant]
     Indication: ANTIVIRAL PROPHYLAXIS
     Dosage: 50 mg, bid
     Route: 065
     Dates: start: 20110615, end: 20110716
  18. ACICLOVIR [Concomitant]
     Dosage: UNK
     Route: 065
     Dates: start: 20110717
  19. MICAFUNGIN SODIUM [Concomitant]
     Indication: PRODUCT USED FOR UNKNOWN INDICATION
     Dosage: 15 mg, qd
     Route: 065
     Dates: start: 20110510
  20. MICAFUNGIN SODIUM [Concomitant]
     Indication: ANTIFUNGAL PROPHYLAXIS
     Dosage: 15 mg, qd
     Route: 065
     Dates: start: 20110613, end: 20110720
  21. GRANISETRON HYDROCHLORIDE [Concomitant]
     Indication: PRODUCT USED FOR UNKNOWN INDICATION
     Dosage: 0.6 mg, bid
     Route: 065
     Dates: start: 20110616, end: 20110620
  22. OMEPRAZOL [Concomitant]
     Indication: PRODUCT USED FOR UNKNOWN INDICATION
     Dosage: 5 mg, bid
     Route: 065
     Dates: start: 20110529
  23. OMEPRAZOL [Concomitant]
     Indication: PROPHYLAXIS AGAINST GASTROINTESTINAL ULCER
     Dosage: 5 mg, bid
     Dates: start: 20110613, end: 20110718
  24. THROMBOMODULIN ALFA [Concomitant]
     Indication: PRODUCT USED FOR UNKNOWN INDICATION
     Dosage: 4480 iu, qd
     Route: 065
     Dates: start: 20110611, end: 20110624
  25. THROMBOMODULIN ALFA [Concomitant]
     Indication: DISSEMINATED INTRAVASCULAR COAGULATION
     Dosage: 4480 iu, qd
     Route: 065
     Dates: start: 20110613, end: 20110711
  26. RED BLOOD CELLS, CONCENTRATED [Concomitant]
     Indication: PRODUCT USED FOR UNKNOWN INDICATION
     Dosage: 1 iu, UNK
     Route: 065
     Dates: start: 20110409
  27. PLATELETS, CONCENTRATED [Concomitant]
     Indication: PRODUCT USED FOR UNKNOWN INDICATION
     Dosage: 10 iu, UNK
     Route: 065
     Dates: start: 20110406
  28. MENATETRENONE [Concomitant]
     Indication: VITAMIN SUPPLEMENTATION
     Dosage: UNK
     Route: 065
     Dates: start: 20110603, end: 20110718
  29. MENATETRENONE [Concomitant]
     Indication: HAEMORRHAGE PROPHYLAXIS
  30. FREEZE DRIED SULFONATED HUMAN NORMAL IMMUNOGLOBULIN [Concomitant]
     Indication: ANTIVIRAL PROPHYLAXIS
     Dosage: UNK
     Route: 065
     Dates: start: 20110623, end: 20110912
  31. TACROLIMUS [Concomitant]
     Indication: PROPHYLAXIS AGAINST GRAFT VERSUS HOST DISEASE
     Dosage: UNK
     Route: 065
     Dates: start: 20110620, end: 20110802
  32. TACROLIMUS [Concomitant]
     Dosage: UNK
     Route: 065
     Dates: start: 20110803
  33. METHOTREXATE [Concomitant]
     Indication: PROPHYLAXIS AGAINST GRAFT VERSUS HOST DISEASE
     Dosage: UNK
     Route: 065
     Dates: start: 20110623, end: 20110706
  34. CYCLOPHOSPHAMIDE [Concomitant]
     Indication: LEUKAEMIA
     Dosage: UNK
     Route: 065
     Dates: start: 20110616, end: 20110617
  35. ETOPOSIDE [Concomitant]
     Indication: LEUKAEMIA
     Dosage: UNK
     Route: 065
     Dates: start: 20120620, end: 20120620
  36. SULFAMETHOPRIM [Concomitant]
     Indication: ANTIFUNGAL PROPHYLAXIS
     Dosage: UNK
     Route: 065
     Dates: start: 20110722
  37. FOSFLUCONAZOLE [Concomitant]
     Indication: ANTIFUNGAL PROPHYLAXIS
     Dosage: UNK
     Route: 065
     Dates: start: 20110625, end: 20110704

REACTIONS (11)
  - Infection [Recovered/Resolved]
  - Pyrexia [Recovered/Resolved]
  - Blood bilirubin increased [Recovered/Resolved]
  - Transaminases increased [Recovered/Resolved]
  - Acute graft versus host disease [Recovered/Resolved]
  - Graft versus host disease in liver [Recovered/Resolved]
  - Neutropenia [Recovered/Resolved]
  - Antithrombin III decreased [Recovered/Resolved]
  - Hepatic function abnormal [Recovered/Resolved]
  - Chronic graft versus host disease [Not Recovered/Not Resolved]
  - Respiratory syncytial virus infection [Recovered/Resolved]
